FAERS Safety Report 5182998-X (Version None)
Quarter: 2006Q4

REPORT INFORMATION
  Report Type: 
  Country: None (occurrence: None)
  Receive Date: 20061220
  Receipt Date: 20051130
  Transmission Date: 20070319
  Serious: Yes (Other)
  Sender: FDA-Public Use
  Company Number: US-GLAXOSMITHKLINE-A0584055A

PATIENT
  Age: 74 Year
  Sex: Female

DRUGS (1)
  1. NICODERM CQ [Suspect]
     Dosage: 7MG UNKNOWN
     Route: 062

REACTIONS (3)
  - DRUG ABUSER [None]
  - ERYTHEMA [None]
  - RASH ERYTHEMATOUS [None]
